FAERS Safety Report 7713840-8 (Version None)
Quarter: 2011Q3

REPORT INFORMATION
  Report Type: 
  Country: None (occurrence: None)
  Receive Date: 20110826
  Receipt Date: 20110823
  Transmission Date: 20111222
  Serious: Yes (Hospitalization, Other)
  Sender: FDA-Public Use
  Company Number: IL-ABBOTT-11P-082-0848418-00

PATIENT
  Age: 76 Year
  Sex: Female

DRUGS (2)
  1. HUMIRA [Suspect]
     Indication: CROHN'S DISEASE
  2. PREDNISONE [Concomitant]
     Indication: CROHN'S DISEASE
     Dosage: 25MG EVERY MORNING, 10MG DAY OF CHEMO.

REACTIONS (2)
  - FEBRILE NEUTROPENIA [None]
  - BREAST CANCER RECURRENT [None]
